FAERS Safety Report 10468256 (Version 2)
Quarter: 2014Q4

REPORT INFORMATION
  Report Type: Spontaneous
  Country: MX (occurrence: MX)
  Receive Date: 20140922
  Receipt Date: 20141006
  Transmission Date: 20150528
  Serious: Yes (Other)
  Sender: FDA-Public Use
  Company Number: MX-PFIZER INC-2014258390

PATIENT
  Age: 55 Year
  Sex: Female

DRUGS (2)
  1. KEPPRA [Suspect]
     Active Substance: LEVETIRACETAM
     Dosage: 3 DF, 3X/DAY
  2. EPAMIN [Suspect]
     Active Substance: PHENYTOIN SODIUM
     Dosage: 3 DF, DAILY
     Dates: start: 1982

REACTIONS (1)
  - Seizure [Unknown]
